FAERS Safety Report 6417711-9 (Version None)
Quarter: 2009Q4

REPORT INFORMATION
  Report Type: 
  Country: None (occurrence: None)
  Receive Date: 20091026
  Receipt Date: 20091013
  Transmission Date: 20100525
  Serious: Yes (Other)
  Sender: FDA-Public Use
  Company Number: ADR39812009

PATIENT
  Age: 64 Year
  Sex: Male

DRUGS (4)
  1. SIMVASTATIN [Suspect]
     Indication: HYPERCHOLESTEROLAEMIA
     Dosage: ORAL
     Route: 048
     Dates: start: 20070327, end: 20081112
  2. ASPIRIN [Concomitant]
  3. CALCIPOTRIENE [Concomitant]
  4. NITROLINGUAL [Concomitant]

REACTIONS (3)
  - MYALGIA [None]
  - PSORIASIS [None]
  - RASH [None]
